FAERS Safety Report 5981786-1 (Version None)
Quarter: 2008Q4

REPORT INFORMATION
  Report Type: 
  Country: None (occurrence: None)
  Receive Date: 20081205
  Receipt Date: 20081127
  Transmission Date: 20090506
  Serious: Yes (Hospitalization)
  Sender: FDA-Public Use
  Company Number: FR-ABBOTT-08P-056-0469875-00

PATIENT
  Sex: Male

DRUGS (2)
  1. DEPAKENE [Suspect]
     Indication: EPILEPSY
     Route: 048
     Dates: start: 20040101
  2. BEVACIZUMAB [Suspect]
     Indication: RENAL NEOPLASM
     Dosage: 25 MG/ML
     Route: 042
     Dates: start: 20050301

REACTIONS (3)
  - CHOLESTASIS [None]
  - CYTOLYTIC HEPATITIS [None]
  - MIXED LIVER INJURY [None]
